FAERS Safety Report 6784352-3 (Version None)
Quarter: 2010Q2

REPORT INFORMATION
  Report Type: 
  Country: None (occurrence: None)
  Receive Date: 20100622
  Receipt Date: 20100616
  Transmission Date: 20101027
  Serious: Yes (Hospitalization)
  Sender: FDA-Public Use
  Company Number: CH-MERCK-1006USA02524

PATIENT
  Age: 42 Year
  Sex: Male

DRUGS (4)
  1. JANUVIA [Suspect]
     Indication: TYPE 2 DIABETES MELLITUS
     Route: 048
     Dates: start: 20100401, end: 20100520
  2. JANUVIA [Suspect]
     Route: 048
     Dates: start: 20100528
  3. RIMACTAZID [Suspect]
     Indication: DISSEMINATED TUBERCULOSIS
     Route: 065
     Dates: start: 20100317, end: 20100518
  4. NEXIUM [Suspect]
     Indication: DUODENAL ULCER
     Route: 065

REACTIONS (1)
  - RENAL FAILURE ACUTE [None]
